FAERS Safety Report 7601412-5 (Version None)
Quarter: 2011Q3

REPORT INFORMATION
  Report Type: 
  Country: None (occurrence: None)
  Receive Date: 20110711
  Receipt Date: 20110629
  Transmission Date: 20111222
  Serious: Yes (Disabling)
  Sender: FDA-Public Use
  Company Number: US-MERCK-1107USA00028

PATIENT
  Age: 35 Year
  Sex: Male

DRUGS (1)
  1. DECADRON [Suspect]
     Indication: RADIATION NECROSIS
     Route: 048

REACTIONS (5)
  - OBESITY [None]
  - ABULIA [None]
  - MYOPATHY [None]
  - SLEEP APNOEA SYNDROME [None]
  - INSOMNIA [None]
